FAERS Safety Report 7801852-5 (Version None)
Quarter: 2011Q4

REPORT INFORMATION
  Report Type: 
  Country: None (occurrence: None)
  Receive Date: 20111005
  Receipt Date: 20110922
  Transmission Date: 20120403
  Serious: Yes (Death)
  Sender: FDA-Public Use
  Company Number: FK201102047

PATIENT
  Age: 68 Year
  Sex: Male

DRUGS (2)
  1. OXALIPLATIN [Suspect]
     Indication: RECTAL CANCER
     Dosage: 160 MG
     Dates: start: 20110516, end: 20110808
  2. FLUOROURACIL [Suspect]
     Indication: RECTAL CANCER
     Dosage: 500 MG
     Dates: start: 20110516, end: 20110808

REACTIONS (3)
  - THROMBOSIS [None]
  - ACUTE HEPATIC FAILURE [None]
  - EMBOLISM VENOUS [None]
